FAERS Safety Report 23191862 (Version 3)
Quarter: 2024Q1

REPORT INFORMATION
  Report Type: Report from Study
  Country: US (occurrence: US)
  Receive Date: 20231116
  Receipt Date: 20240113
  Transmission Date: 20240410
  Serious: No
  Sender: FDA-Public Use
  Company Number: US-002147023-NVSC2023US244117

PATIENT
  Sex: Female

DRUGS (1)
  1. KESIMPTA [Suspect]
     Active Substance: OFATUMUMAB
     Indication: Relapsing multiple sclerosis
     Dosage: UNK
     Route: 065
     Dates: start: 20231105

REACTIONS (7)
  - Pollakiuria [Unknown]
  - Arthralgia [Unknown]
  - Pain in extremity [Unknown]
  - Pyrexia [Unknown]
  - Insomnia [Unknown]
  - Chills [Unknown]
  - Memory impairment [Unknown]
